FAERS Safety Report 11844532 (Version 1)
Quarter: 2015Q4

REPORT INFORMATION
  Report Type: Spontaneous
  Country: GB (occurrence: GB)
  Receive Date: 20151217
  Receipt Date: 20151217
  Transmission Date: 20160305
  Serious: Yes (Hospitalization)
  Sender: FDA-Public Use
  Company Number: GB-009507513-1512GBR006004

PATIENT
  Age: 69 Year
  Sex: Male
  Weight: 53.97 kg

DRUGS (2)
  1. MIRTAZAPINE. [Suspect]
     Active Substance: MIRTAZAPINE
     Indication: ANXIETY
     Dosage: 15 MG, UNK
     Route: 048
     Dates: start: 20151112, end: 20151113
  2. BENSERAZIDE HYDROCHLORIDE (+) LEVODOPA [Concomitant]
     Active Substance: BENSERAZIDE\LEVODOPA

REACTIONS (2)
  - Confusional state [Recovered/Resolved]
  - Fall [Recovered/Resolved]

NARRATIVE: CASE EVENT DATE: 20151112
